FAERS Safety Report 9856794 (Version 2)
Quarter: 2014Q3

REPORT INFORMATION
  Report Type: Spontaneous
  Country: US (occurrence: US)
  Receive Date: 20140130
  Receipt Date: 20140815
  Transmission Date: 20150326
  Serious: Yes (Hospitalization)
  Sender: FDA-Public Use
  Company Number: US-009507513-1401USA014109

PATIENT
  Sex: Female

DRUGS (1)
  1. NUVARING [Suspect]
     Active Substance: ETHINYL ESTRADIOL\ETONOGESTREL
     Indication: CONTRACEPTION
     Dosage: UNK
     Route: 067
     Dates: start: 201012, end: 20120619

REACTIONS (5)
  - Asthma [Unknown]
  - Vena cava filter insertion [Unknown]
  - Deep vein thrombosis [Recovered/Resolved]
  - Thrombectomy [Unknown]
  - Venous stent insertion [Unknown]

NARRATIVE: CASE EVENT DATE: 20120619
